FAERS Safety Report 13288903 (Version 1)
Quarter: 2017Q1

REPORT INFORMATION
  Report Type: Report from Study
  Country: CR (occurrence: CR)
  Receive Date: 20170302
  Receipt Date: 20170302
  Transmission Date: 20170428
  Serious: Yes (Death)
  Sender: FDA-Public Use
  Company Number: CR-ASTRAZENECA-2017SE22145

PATIENT
  Age: 95 Year
  Sex: Female

DRUGS (1)
  1. CRESTOR [Suspect]
     Active Substance: ROSUVASTATIN CALCIUM
     Dosage: 40.0MG UNKNOWN
     Route: 048
     Dates: start: 20130612

REACTIONS (1)
  - Death [Fatal]
